FAERS Safety Report 8387884-X (Version None)
Quarter: 2012Q2

REPORT INFORMATION
  Report Type: 
  Country: None (occurrence: None)
  Receive Date: 20120525
  Receipt Date: 20120521
  Transmission Date: 20120825
  Serious: Yes (Other)
  Sender: FDA-Public Use
  Company Number: US-PFIZER INC-2012124710

PATIENT
  Sex: Female

DRUGS (3)
  1. DILANTIN [Suspect]
     Indication: CONVULSION
     Dosage: UNK
  2. LYRICA [Suspect]
     Indication: CONVULSION
     Dosage: UNK
     Route: 048
     Dates: end: 20110601
  3. LYRICA [Suspect]
     Dosage: UNK
     Route: 048
     Dates: start: 20110801

REACTIONS (3)
  - SKIN LESION [None]
  - STAPHYLOCOCCAL INFECTION [None]
  - BLISTER [None]
